FAERS Safety Report 7544135-3 (Version None)
Quarter: 2011Q2

REPORT INFORMATION
  Report Type: 
  Country: None (occurrence: None)
  Receive Date: 20110613
  Receipt Date: 20060428
  Transmission Date: 20111010
  Serious: Yes (Death, Life-Threatening, Other)
  Sender: FDA-Public Use
  Company Number: PHHO2006JP06071

PATIENT
  Sex: Female

DRUGS (6)
  1. BIO THREE [Concomitant]
     Indication: CONSTIPATION
     Dosage: 3 DF,
     Route: 048
  2. KREMEZIN [Concomitant]
     Indication: BLOOD POTASSIUM INCREASED
     Dates: start: 20050330, end: 20050920
  3. AZELASTINE HCL [Concomitant]
     Indication: ECZEMA
     Dosage: 2 DF,
     Route: 048
  4. DIOVAN [Suspect]
     Indication: HYPERTENSION
     Dosage: 80 MG, QD
     Route: 048
     Dates: start: 20030319, end: 20050621
  5. PERSANTIN [Concomitant]
     Indication: PROTEINURIA
     Dosage: 150 MG, DAILY
     Route: 048
     Dates: start: 19940305
  6. NOLVADEX [Concomitant]
     Indication: BREAST CANCER
     Dosage: 20 MG, DAILY
     Route: 048
     Dates: start: 20000613

REACTIONS (7)
  - PRODUCTIVE COUGH [None]
  - INTERSTITIAL LUNG DISEASE [None]
  - RENAL FAILURE [None]
  - HYPERKALAEMIA [None]
  - BLOOD CREATININE INCREASED [None]
  - RESPIRATORY FAILURE [None]
  - PYREXIA [None]
